FAERS Safety Report 6129165-0 (Version None)
Quarter: 2009Q1

REPORT INFORMATION
  Report Type: 
  Country: None (occurrence: None)
  Receive Date: 20090320
  Receipt Date: 20090309
  Transmission Date: 20090719
  Serious: Yes (Hospitalization)
  Sender: FDA-Public Use
  Company Number: TOR 2009-0014

PATIENT
  Age: 50 Year
  Sex: Female

DRUGS (4)
  1. FARESTON [Suspect]
     Indication: BREAST CANCER
     Dosage: 120 MG
     Route: 048
     Dates: start: 20080728
  2. LOXOSININ [Concomitant]
  3. MUCOSTA [Concomitant]
  4. CYTOTEC [Concomitant]

REACTIONS (2)
  - DYSPNOEA [None]
  - PLEURAL EFFUSION [None]
